FAERS Safety Report 8312221 (Version 5)
Quarter: 2013Q4

REPORT INFORMATION
  Report Type: Spontaneous
  Country: JP (occurrence: JP)
  Receive Date: 20111227
  Receipt Date: 20131120
  Transmission Date: 20140711
  Serious: Yes (Hospitalization, Other)
  Sender: FDA-Public Use
  Company Number: JP-ROCHE-1023737

PATIENT
  Age: 76 Year
  Sex: Male
  Weight: 52 kg

DRUGS (8)
  1. LUCENTIS [Suspect]
     Indication: AGE-RELATED MACULAR DEGENERATION
     Route: 050
     Dates: start: 20090821
  2. LUCENTIS [Suspect]
     Route: 050
     Dates: start: 20091117
  3. LUCENTIS [Suspect]
     Route: 050
     Dates: start: 20100105
  4. KENACORT-A [Suspect]
     Indication: PRODUCT USED FOR UNKNOWN INDICATION
     Route: 065
     Dates: start: 20090821
  5. KENACORT-A [Suspect]
     Route: 065
     Dates: start: 20091013
  6. KENACORT-A [Suspect]
     Route: 065
     Dates: start: 20091117
  7. TRIAMCINOLONE [Concomitant]
     Route: 065
  8. CRAVIT [Concomitant]
     Route: 065
     Dates: start: 20091019, end: 20091118

REACTIONS (2)
  - Myocardial infarction [Recovered/Resolved]
  - Intraocular pressure increased [Recovered/Resolved]
